FAERS Safety Report 14553661 (Version 1)
Quarter: 2018Q1

REPORT INFORMATION
  Report Type: Spontaneous
  Country: US (occurrence: US)
  Receive Date: 20180220
  Receipt Date: 20180220
  Transmission Date: 20180509
  Serious: No
  Sender: FDA-Public Use
  Company Number: US-COLLEGIUM PHARMACEUTICAL, INC.-2018CGM00003

PATIENT
  Sex: Male

DRUGS (15)
  1. REVLIMID [Suspect]
     Active Substance: LENALIDOMIDE
     Dosage: 10 MG, 1X/DAY
     Route: 048
     Dates: start: 201605
  2. RANITIDINE HCL [Concomitant]
     Active Substance: RANITIDINE HYDROCHLORIDE
     Route: 048
  3. LIDOCAINE. [Concomitant]
     Active Substance: LIDOCAINE
     Route: 061
  4. REVLIMID [Suspect]
     Active Substance: LENALIDOMIDE
     Dosage: 25 MG, 1X/DAY
     Route: 048
     Dates: start: 201203
  5. NEXIUM [Concomitant]
     Active Substance: ESOMEPRAZOLE MAGNESIUM
     Route: 048
  6. PANTOPRAZOLE SODIUM. [Concomitant]
     Active Substance: PANTOPRAZOLE SODIUM
     Route: 048
  7. HYDROCHLOROTHIAZIDE. [Concomitant]
     Active Substance: HYDROCHLOROTHIAZIDE
  8. XTAMPZA ER [Suspect]
     Active Substance: OXYCODONE
     Dosage: UNK
  9. ASPIRIN EC [Concomitant]
     Active Substance: ASPIRIN
     Route: 048
  10. SENOKOT [Concomitant]
     Active Substance: SENNOSIDES
     Route: 048
  11. REVLIMID [Suspect]
     Active Substance: LENALIDOMIDE
     Indication: PLASMA CELL MYELOMA
     Dosage: UNK
     Route: 048
     Dates: start: 201202
  12. REVLIMID [Suspect]
     Active Substance: LENALIDOMIDE
     Dosage: 10 MG, 1X/DAY
     Route: 048
     Dates: start: 201510
  13. REVLIMID [Suspect]
     Active Substance: LENALIDOMIDE
     Dosage: 25 MG, 1X/DAY
     Route: 048
     Dates: start: 201604
  14. COLACE [Concomitant]
     Active Substance: DOCUSATE SODIUM
     Route: 048
  15. ONDANSETRON HCL [Concomitant]
     Active Substance: ONDANSETRON HYDROCHLORIDE
     Route: 048

REACTIONS (4)
  - Blood potassium decreased [Unknown]
  - Cancer pain [Not Recovered/Not Resolved]
  - Constipation [Unknown]
  - Back pain [Unknown]
